FAERS Safety Report 7319485-6 (Version None)
Quarter: 2011Q1

REPORT INFORMATION
  Report Type: 
  Country: None (occurrence: None)
  Receive Date: 20110228
  Receipt Date: 20100414
  Transmission Date: 20110831
  Serious: No
  Sender: FDA-Public Use
  Company Number: A0855022A

PATIENT
  Age: 43 Year
  Sex: Female

DRUGS (2)
  1. LAMICTAL [Suspect]
     Indication: MAJOR DEPRESSION
     Dosage: 25MG PER DAY
     Route: 048
     Dates: start: 20100331, end: 20100411
  2. NO CONCURRENT MEDICATION [Concomitant]

REACTIONS (2)
  - OROPHARYNGEAL BLISTERING [None]
  - RASH [None]
